FAERS Safety Report 4783879-3 (Version None)
Quarter: 2005Q3

REPORT INFORMATION
  Report Type: 
  Country: None (occurrence: None)
  Receive Date: 20050928
  Receipt Date: 20050221
  Transmission Date: 20060218
  Serious: No
  Sender: FDA-Public Use
  Company Number: 2005FR-00316

PATIENT
  Sex: Male

DRUGS (1)
  1. IBUPROFEN [Suspect]
     Indication: BACK PAIN
     Dosage: 200 MG ONCE DAILY, ORAL
     Route: 048
     Dates: start: 20050101

REACTIONS (4)
  - ANAPHYLACTIC SHOCK [None]
  - DIZZINESS [None]
  - HYPOTENSION [None]
  - SWELLING FACE [None]
